FAERS Safety Report 5282351-4 (Version None)
Quarter: 2007Q2

REPORT INFORMATION
  Report Type: 
  Country: None (occurrence: None)
  Receive Date: 20070326
  Receipt Date: 20070315
  Transmission Date: 20071010
  Serious: Yes (Other)
  Sender: FDA-Public Use
  Company Number: 2007RR-06370

PATIENT
  Age: 40 Year
  Sex: Male
  Weight: 92.3 kg

DRUGS (11)
  1. AMOXICILLIN AND CLAVULANATE POTASSIUM [Suspect]
     Indication: SURGERY
     Dosage: 1.2 G, INTRAVENOUS
     Route: 042
     Dates: start: 20060519, end: 20060519
  2. ACETAMINOPHEN [Suspect]
     Indication: ANALGESIC EFFECT
     Dosage: 1 G, INTRAVENOUS
     Route: 042
     Dates: start: 20060519, end: 20060519
  3. ATENOLOL [Concomitant]
  4. CO-CODAMOL [Concomitant]
  5. CYCLIZINE [Concomitant]
  6. FENTANYL [Concomitant]
  7. LANSOPRAZOLE (LANSPPRAZOLE) [Concomitant]
  8. ONDANSETRON HCL [Concomitant]
  9. PROPOFOL [Concomitant]
  10. SIMVASTATIN [Concomitant]
  11. SODIUM CHLORIDE 0.9% [Concomitant]

REACTIONS (3)
  - BLOOD PRESSURE DECREASED [None]
  - HYPERSENSITIVITY [None]
  - OXYGEN SATURATION DECREASED [None]
